FAERS Safety Report 19228996 (Version 2)
Quarter: 2021Q3

REPORT INFORMATION
  Report Type: Spontaneous
  Country: US (occurrence: US)
  Receive Date: 20210506
  Receipt Date: 20210801
  Transmission Date: 20211014
  Serious: Yes (Hospitalization)
  Sender: FDA-Public Use
  Company Number: US-009507513-2105USA000624

PATIENT
  Age: 13 Year
  Sex: Male

DRUGS (2)
  1. INTRON A [Suspect]
     Active Substance: INTERFERON ALFA-2B
     Dosage: 0.6 MILLILITER, ON DAYS 1, 3, 5, 7, 15, 17, 19, AND 21 OF EACH 28 DAY CYCLE
     Route: 058
     Dates: start: 20210504
  2. INTRON A [Suspect]
     Active Substance: INTERFERON ALFA-2B
     Indication: HEPATIC CANCER
     Dosage: 6 MILLION INTERNATIONAL UNIT (0.6ML), DAYS 1, 3, 5, 7, 15, 17, 19, AND 21 OF EACH 28 DAY CYCLE
     Route: 058
     Dates: start: 20200821

REACTIONS (4)
  - Surgery [Unknown]
  - Influenza like illness [Unknown]
  - Pyrexia [Unknown]
  - Fatigue [Unknown]

NARRATIVE: CASE EVENT DATE: 20210615
